FAERS Safety Report 5927671-2 (Version None)
Quarter: 2008Q4

REPORT INFORMATION
  Report Type: 
  Country: None (occurrence: None)
  Receive Date: 20081023
  Receipt Date: 19990427
  Transmission Date: 20090506
  Serious: Yes (Other)
  Sender: FDA-Public Use
  Company Number: US-BAXTER-2008BH010308

PATIENT
  Age: 66 Year
  Sex: Male

DRUGS (4)
  1. HEPARIN SODIUM 5,000 UNITS IN DEXTROSE 5% [Suspect]
     Indication: MYOCARDIAL INFARCTION
     Route: 042
     Dates: start: 19990315
  2. TIROFIBAN HYDROCHLORIDE [Suspect]
     Dosage: DOSE UNIT:UNKNOWN
     Route: 065
     Dates: start: 19990315
  3. MORPHINE SULFATE INJ [Suspect]
     Dosage: DOSE UNIT:UNKNOWN
     Route: 065
     Dates: start: 19990315
  4. ACETYLSALICYLIC ACID SRT [Suspect]
     Dosage: DOSE UNIT:UNKNOWN
     Route: 065
     Dates: start: 19990315

REACTIONS (2)
  - HYPOTENSION [None]
  - PHARYNGEAL OEDEMA [None]
